FAERS Safety Report 23343477 (Version 4)
Quarter: 2024Q3

REPORT INFORMATION
  Report Type: Spontaneous
  Country: US (occurrence: US)
  Receive Date: 20231227
  Receipt Date: 20240716
  Transmission Date: 20241017
  Serious: No
  Sender: PFIZER
  Company Number: US-PFIZER INC-PV202300204033

PATIENT
  Age: 51 Year
  Sex: Female

DRUGS (1)
  1. IBRANCE [Suspect]
     Active Substance: PALBOCICLIB
     Dosage: 1 TABLET, ONCE DAILY FOR 14 DAYS ON THEN 14 DAYS OFF, TAKE WITH OR WITHOUT FOOD
     Route: 048

REACTIONS (4)
  - Alopecia [Unknown]
  - Fatigue [Unknown]
  - Product dose omission in error [Unknown]
  - Off label use [Unknown]
